FAERS Safety Report 8853296 (Version 3)
Quarter: 2013Q1

REPORT INFORMATION
  Report Type: Spontaneous
  Country: FR (occurrence: FR)
  Receive Date: 20121022
  Receipt Date: 20130211
  Transmission Date: 20140127
  Serious: Yes (Other)
  Sender: FDA-Public Use
  Company Number: FR-ROCHE-1132596

PATIENT
  Age: 47 Year
  Sex: Female

DRUGS (13)
  1. PEGASYS [Suspect]
     Indication: HEPATITIS C
     Route: 058
     Dates: start: 20120321, end: 20120612
  2. COPEGUS [Suspect]
     Indication: HEPATITIS C
     Route: 048
     Dates: start: 20120321, end: 20120612
  3. NEORECORMON [Suspect]
     Indication: ANAEMIA
     Route: 058
  4. VICTRELIS [Suspect]
     Indication: HEPATITIS C
     Route: 048
     Dates: start: 20120321, end: 20120612
  5. ATRIPLA [Suspect]
     Indication: HIV INFECTION
     Route: 048
     Dates: start: 20120321
  6. COMBIVIR [Concomitant]
     Route: 065
     Dates: start: 20090616
  7. SUSTIVA [Concomitant]
  8. KALETRA [Concomitant]
     Route: 065
  9. TRUVADA [Concomitant]
     Route: 065
     Dates: start: 20100901
  10. ZELITREX [Concomitant]
     Route: 065
     Dates: start: 2009
  11. LEVOTHYROX [Concomitant]
     Route: 065
  12. UVEDOSE [Concomitant]
     Route: 065
     Dates: start: 201204
  13. TRIATEC 5 [Concomitant]
     Route: 065

REACTIONS (8)
  - Anaemia [Recovered/Resolved]
  - Deafness [Not Recovered/Not Resolved]
  - Tinnitus [Not Recovered/Not Resolved]
  - Melanoderma [Not Recovered/Not Resolved]
  - Pruritus [Not Recovered/Not Resolved]
  - Insomnia [Recovering/Resolving]
  - Vertigo [Recovering/Resolving]
  - Neutropenia [Recovered/Resolved]
